FAERS Safety Report 7221820-4 (Version None)
Quarter: 2011Q1

REPORT INFORMATION
  Report Type: 
  Country: None (occurrence: None)
  Receive Date: 20110112
  Receipt Date: 20101222
  Transmission Date: 20110831
  Serious: Yes (Hospitalization, Congenital Anomaly)
  Sender: FDA-Public Use
  Company Number: A0683127A

PATIENT
  Sex: Female
  Weight: 1.5 kg

DRUGS (4)
  1. TYLENOL W/ CODEINE NO. 3 [Concomitant]
  2. PAXIL [Suspect]
     Indication: DEPRESSION
     Dosage: 20MG AT NIGHT
  3. VISTARIL [Concomitant]
     Dates: start: 20001204
  4. DEMEROL [Concomitant]
     Dates: start: 20001204

REACTIONS (13)
  - FAILURE TO THRIVE [None]
  - CONGENITAL HYDROCEPHALUS [None]
  - PATENT DUCTUS ARTERIOSUS [None]
  - HYPOTHYROIDISM [None]
  - NEURAL TUBE DEFECT [None]
  - FOETAL GROWTH RESTRICTION [None]
  - VENTRICULAR SEPTAL DEFECT [None]
  - DEVELOPMENTAL DELAY [None]
  - PREMATURE BABY [None]
  - SPEECH DISORDER DEVELOPMENTAL [None]
  - SEPTUM PELLUCIDUM AGENESIS [None]
  - ANAEMIA [None]
  - DRUG EXPOSURE DURING PREGNANCY [None]
